FAERS Safety Report 8822313 (Version 3)
Quarter: 2013Q1

REPORT INFORMATION
  Report Type: Spontaneous
  Country: US (occurrence: US)
  Receive Date: 20121003
  Receipt Date: 20130314
  Transmission Date: 20140127
  Serious: Yes (Hospitalization, Other)
  Sender: FDA-Public Use
  Company Number: US-BAYER-2012-100062

PATIENT
  Age: 23 Year
  Sex: Female
  Weight: 96.15 kg

DRUGS (4)
  1. YAZ [Suspect]
     Indication: CONTRACEPTION
     Dosage: UNK
     Dates: start: 20090801, end: 20110222
  2. MECLIZINE [Concomitant]
     Dosage: 25 MG, UNK
     Route: 048
     Dates: start: 20101229
  3. CYCLOBENZAPRINE [Concomitant]
     Dosage: 10 MG, UNK
     Route: 048
     Dates: start: 20110114
  4. HYDROCODONE W/ACETAMINOPHEN [Concomitant]
     Dosage: UNK
     Route: 048
     Dates: start: 20110123

REACTIONS (9)
  - Deep vein thrombosis [None]
  - Pain [None]
  - Injury [None]
  - General physical health deterioration [None]
  - Anxiety [None]
  - Pain [None]
  - Anhedonia [None]
  - Emotional distress [None]
  - Thrombophlebitis superficial [None]
